FAERS Safety Report 4430612-0 (Version None)
Quarter: 2004Q3

REPORT INFORMATION
  Report Type: 
  Country: None (occurrence: None)
  Receive Date: 20040819
  Receipt Date: 20040819
  Transmission Date: 20050211
  Serious: Yes (Hospitalization)
  Sender: FDA-Public Use
  Company Number: None

PATIENT
  Sex: Male
  Weight: 116.1208 kg

DRUGS (1)
  1. WARFARIN 15 MG Q DAY [Suspect]
     Indication: ATRIAL FIBRILLATION
     Dosage: 15 MG PO Q DAY
     Route: 048

REACTIONS (1)
  - SUBDURAL HAEMATOMA [None]
